FAERS Safety Report 4585626-7 (Version None)
Quarter: 2005Q1

REPORT INFORMATION
  Report Type: 
  Country: None (occurrence: None)
  Receive Date: 20050214
  Receipt Date: 20050202
  Transmission Date: 20050727
  Serious: Yes (Death)
  Sender: FDA-Public Use
  Company Number: 2005010786

PATIENT
  Age: 73 Year
  Sex: Female

DRUGS (7)
  1. AMLODIPINE [Suspect]
     Indication: HYPERTENSION
     Dosage: 5 MG (5 MG, INTERVAL: EVERY DAY), ORAL
     Route: 048
     Dates: start: 20040405
  2. EFFEXOR [Suspect]
     Indication: DYSTHYMIC DISORDER
     Dosage: 1 DOSE FORM (INTERVAL:  EVERY DAY), ORAL
     Route: 048
     Dates: start: 20040405
  3. LANTUS [Suspect]
     Indication: DIABETES MELLITUS
     Dosage: SUBCUTANEOUS
     Route: 058
     Dates: start: 20040415
  4. DIGOXIN [Suspect]
     Indication: CARDIAC FAILURE
     Dosage: 0.125 MG (0.125 MG, INTERVAL: EVERY DAY) ORAL
     Route: 048
     Dates: start: 20040415
  5. FUROSEMIDE (FUROSEMIDE) [Suspect]
     Indication: ILL-DEFINED DISORDER
     Dosage: INTERVAL: EVERY DAY
  6. THALIDOMIDE (THALIDOMIDE) [Suspect]
     Indication: MULTIPLE MYELOMA
     Dosage: 300 MG (INTERVAL: EVERY DAY), ORAL
     Route: 048
     Dates: start: 20040209
  7. ALDALIX (SPIRONOLACTONE, FUROSEMIDE) [Suspect]
     Indication: CARDIAC FAILURE
     Dosage: 5 DOSE FORMS (1 IN 1 D), ORAL
     Route: 048
     Dates: start: 20040517

REACTIONS (7)
  - ANAEMIA [None]
  - CARDIAC FAILURE [None]
  - CONDITION AGGRAVATED [None]
  - HYPOALBUMINAEMIA [None]
  - HYPOGAMMAGLOBULINAEMIA [None]
  - VENTRICULAR HYPERTROPHY [None]
  - VENTRICULAR HYPOKINESIA [None]
